FAERS Safety Report 23681993 (Version 1)
Quarter: 2024Q1

REPORT INFORMATION
  Report Type: Spontaneous
  Country: GB (occurrence: GB)
  Receive Date: 20240328
  Receipt Date: 20240328
  Transmission Date: 20240410
  Serious: Yes (Other)
  Sender: FDA-Public Use
  Company Number: GB-MYLANLABS-2024M1022949

PATIENT

DRUGS (1)
  1. PREGABALIN [Suspect]
     Active Substance: PREGABALIN
     Indication: Neuralgia
     Dosage: UNK
     Route: 065

REACTIONS (8)
  - Intentional product use issue [Unknown]
  - Anxiety [Unknown]
  - Drug dependence [Unknown]
  - Euphoric mood [Unknown]
  - Disturbance in attention [Unknown]
  - Balance disorder [Unknown]
  - Pain [Unknown]
  - Feeling drunk [Unknown]
